FAERS Safety Report 23494749 (Version 1)
Quarter: 2024Q1

REPORT INFORMATION
  Report Type: Spontaneous
  Country: US (occurrence: None)
  Receive Date: 20240206
  Receipt Date: 20240206
  Transmission Date: 20240409
  Serious: Yes (unspecified)
  Sender: FDA-Public Use
  Company Number: None

PATIENT
  Age: 76 Year
  Sex: Male
  Weight: 112.5 kg

DRUGS (1)
  1. VABYSMO [Suspect]
     Active Substance: FARICIMAB\FARICIMAB-SVOA
     Indication: Neovascular age-related macular degeneration
     Dates: start: 20240117, end: 20240118

REACTIONS (5)
  - Vitreous floaters [None]
  - Eye pain [None]
  - Blindness [None]
  - Photopsia [None]
  - Inflammation [None]

NARRATIVE: CASE EVENT DATE: 20240117
